FAERS Safety Report 6497868-4 (Version None)
Quarter: 2009Q4

REPORT INFORMATION
  Report Type: 
  Country: None (occurrence: None)
  Receive Date: 20091215
  Receipt Date: 20091203
  Transmission Date: 20100525
  Serious: Yes (Hospitalization)
  Sender: FDA-Public Use
  Company Number: US-AMGEN-KDL378386

PATIENT
  Sex: Male
  Weight: 64.5 kg

DRUGS (14)
  1. PROCRIT [Suspect]
     Indication: ANAEMIA
     Route: 058
     Dates: start: 20080101
  2. KENALOG [Concomitant]
  3. CARDURA [Concomitant]
     Route: 048
  4. PREDNISONE [Concomitant]
  5. PROSCAR [Concomitant]
     Route: 048
  6. LASIX [Concomitant]
  7. POTASSIUM [Concomitant]
  8. LISINOPRIL [Concomitant]
  9. FOSAMAX [Concomitant]
  10. VITAMIN D [Concomitant]
  11. BABY ASPIRIN [Concomitant]
  12. CALCIUM [Concomitant]
  13. ASCORBIC ACID [Concomitant]
  14. MELATONIN [Concomitant]

REACTIONS (8)
  - EXCORIATION [None]
  - FALL [None]
  - HAEMOGLOBIN DECREASED [None]
  - HEAD INJURY [None]
  - JOINT INJURY [None]
  - MOBILITY DECREASED [None]
  - OEDEMA PERIPHERAL [None]
  - RASH GENERALISED [None]
